FAERS Safety Report 4393964-6 (Version None)
Quarter: 2004Q3

REPORT INFORMATION
  Report Type: 
  Country: None (occurrence: None)
  Receive Date: 20040701
  Receipt Date: 20040621
  Transmission Date: 20050211
  Serious: No
  Sender: FDA-Public Use
  Company Number: 2004UW12254

PATIENT
  Age: 43 Year
  Sex: Female

DRUGS (2)
  1. SEROQUEL [Suspect]
     Dosage: 200 MG TID PO
     Route: 048
     Dates: start: 20030514
  2. REMERON  /SCH/ [Concomitant]

REACTIONS (2)
  - OPHTHALMOPLEGIA [None]
  - STRABISMUS [None]
